FAERS Safety Report 21595980 (Version 1)
Quarter: 2022Q4

REPORT INFORMATION
  Report Type: Spontaneous
  Country: DE (occurrence: DE)
  Receive Date: 20221115
  Receipt Date: 20221115
  Transmission Date: 20230113
  Serious: Yes (Hospitalization)
  Sender: FDA-Public Use
  Company Number: DE-ADRED-08509-01

PATIENT
  Age: 54 Year
  Sex: Female
  Weight: 53 kg

DRUGS (4)
  1. IBUPROFEN [Suspect]
     Active Substance: IBUPROFEN
     Indication: Product used for unknown indication
     Dosage: 600 MG, BEI BEDARF SEIT ZWEI BIS DREI JAHREN ALLE ZWEI TAGE?600 MG, EVERY TWO DAYS FOR TWO TO THREE
     Route: 048
  2. PANTOPRAZOLE [Concomitant]
     Active Substance: PANTOPRAZOLE
     Indication: Product used for unknown indication
     Dosage: 40 MG, UNREGELMAESSIG AKTUELL SEIT DREI MONATEN NICHT MEHR?40 MG, IRREGULAR CURRENTLY NO LONGER FOR
     Route: 048
  3. LEVOTHYROXINE SODIUM [Concomitant]
     Active Substance: LEVOTHYROXINE SODIUM
     Indication: Product used for unknown indication
     Dosage: 75 UG, 1-0-0-0
     Route: 048
  4. DOXYLAMINE SUCCINATE [Concomitant]
     Active Substance: DOXYLAMINE SUCCINATE
     Indication: Product used for unknown indication
     Dosage: BEI BEDARF?IF REQUIRED

REACTIONS (8)
  - Flank pain [Unknown]
  - Epistaxis [Unknown]
  - Polyuria [Unknown]
  - Anaemia [Unknown]
  - Asthenia [Unknown]
  - Fatigue [Unknown]
  - Renal impairment [Unknown]
  - Medication error [Unknown]
